FAERS Safety Report 6427861-9 (Version None)
Quarter: 2009Q4

REPORT INFORMATION
  Report Type: 
  Country: None (occurrence: None)
  Receive Date: 20091105
  Receipt Date: 20091028
  Transmission Date: 20100525
  Serious: Yes (Hospitalization)
  Sender: FDA-Public Use
  Company Number: JP-JNJFOC-20090503656

PATIENT
  Sex: Female
  Weight: 60 kg

DRUGS (14)
  1. GOLIMUMAB [Suspect]
     Route: 058
  2. GOLIMUMAB [Suspect]
     Route: 058
  3. GOLIMUMAB [Suspect]
     Route: 058
  4. GOLIMUMAB [Suspect]
     Route: 058
  5. GOLIMUMAB [Suspect]
     Route: 058
  6. GOLIMUMAB [Suspect]
     Route: 058
  7. GOLIMUMAB [Suspect]
     Route: 058
  8. GOLIMUMAB [Suspect]
     Route: 058
  9. GOLIMUMAB [Suspect]
     Indication: RHEUMATOID ARTHRITIS
     Route: 058
  10. AMLODIPINE [Concomitant]
     Indication: HYPERTENSION
     Route: 048
  11. ALOSENN [Concomitant]
     Indication: CONSTIPATION
     Route: 048
  12. YAKUBAN [Concomitant]
     Indication: RHEUMATOID ARTHRITIS
     Route: 062
  13. HYALEIN [Concomitant]
     Indication: SJOGREN'S SYNDROME
     Route: 031
  14. ALEGYSAL [Concomitant]
     Indication: SJOGREN'S SYNDROME
     Route: 031

REACTIONS (1)
  - PNEUMONIA [None]
